FAERS Safety Report 9905159 (Version 1)
Quarter: 2013Q2

REPORT INFORMATION
  Report Type: Spontaneous
  Country: US (occurrence: None)
  Receive Date: 20130305
  Receipt Date: 20130305
  Transmission Date: 20140414
  Serious: Yes (Hospitalization)
  Sender: FDA-Public Use
  Company Number: 163-21880-12030685

PATIENT
  Age: 62 Year
  Sex: Female
  Weight: 83 kg

DRUGS (9)
  1. REVLIMID [Suspect]
     Indication: PLASMA CELL MYELOMA
     Route: 048
     Dates: start: 20111011
  2. LANTUS [Suspect]
  3. DEXAMETHASONE (DEXAMETHASONE) [Concomitant]
  4. NOVOLOG (INSULIN ASPART) [Concomitant]
  5. ASPIRIN  (325 MILLIGRAM, TABLETS) [Concomitant]
  6. BENAZEPRIL HCTZ (TABLETS) [Concomitant]
  7. CALCIUM (CALCIUM) [Concomitant]
  8. LEVOTHYROXINE (LEVOTHYROXINE) [Concomitant]
  9. MAGNESIUM (MAGNESIUM) [Concomitant]

REACTIONS (1)
  - Deep vein thrombosis [None]
